FAERS Safety Report 4728305-5 (Version None)
Quarter: 2005Q3

REPORT INFORMATION
  Report Type: 
  Country: None (occurrence: None)
  Receive Date: 20050727
  Receipt Date: 20050725
  Transmission Date: 20060218
  Serious: Yes (Hospitalization)
  Sender: FDA-Public Use
  Company Number: 215264

PATIENT
  Age: 46 Year
  Sex: Male
  Weight: 109.5 kg

DRUGS (2)
  1. AVASTIN [Suspect]
     Indication: GLIOBLASTOMA MULTIFORME
     Dosage: 1095 MG,
     Dates: start: 20050522
  2. IRINOTECAN HCL [Suspect]
     Indication: GLIOBLASTOMA MULTIFORME
     Dosage: 275 MG,
     Dates: start: 20050522

REACTIONS (2)
  - DYSPNOEA [None]
  - HEART RATE INCREASED [None]
